FAERS Safety Report 16388687 (Version 1)
Quarter: 2019Q2

REPORT INFORMATION
  Report Type: Spontaneous
  Country: FR (occurrence: FR)
  Receive Date: 20190604
  Receipt Date: 20190604
  Transmission Date: 20190711
  Serious: Yes (Other)
  Sender: FDA-Public Use
  Company Number: FR-AUROBINDO-AUR-APL-2019-031932

PATIENT

DRUGS (2)
  1. TRAMADOL TABLET [Suspect]
     Active Substance: TRAMADOL
     Indication: PRODUCT USED FOR UNKNOWN INDICATION
     Dosage: UNK, UP TO 1.8 G/DAY
     Route: 065
  2. CODEINE;PARACETAMOL [Suspect]
     Active Substance: ACETAMINOPHEN\CODEINE PHOSPHATE
     Indication: PRODUCT USED FOR UNKNOWN INDICATION
     Dosage: 10 TABLETS/DAY
     Route: 065

REACTIONS (2)
  - Cluster headache [Unknown]
  - Drug abuse [Unknown]
